FAERS Safety Report 10206451 (Version 1)
Quarter: 2014Q2

REPORT INFORMATION
  Report Type: Spontaneous
  Country: US (occurrence: None)
  Receive Date: 20140527
  Receipt Date: 20140527
  Transmission Date: 20141212
  Serious: No
  Sender: FDA-Public Use
  Company Number: None

PATIENT
  Age: 70 Year
  Sex: Female

DRUGS (1)
  1. AUBAGIO [Suspect]
     Route: 048
     Dates: start: 20140402, end: 20140523

REACTIONS (5)
  - Dysuria [None]
  - Deafness [None]
  - Decreased appetite [None]
  - Dizziness [None]
  - Vision blurred [None]
